FAERS Safety Report 15745837 (Version 1)
Quarter: 2018Q4

REPORT INFORMATION
  Report Type: Spontaneous
  Country: US (occurrence: US)
  Receive Date: 20181220
  Receipt Date: 20181220
  Transmission Date: 20190205
  Serious: Yes (Hospitalization)
  Sender: FDA-Public Use
  Company Number: US-PFIZER INC-2018517672

PATIENT
  Age: 26 Year
  Sex: Female

DRUGS (1)
  1. PROSTIN E2 [Suspect]
     Active Substance: DINOPROSTONE
     Indication: PROPHYLAXIS
     Dosage: UNK
     Route: 067

REACTIONS (4)
  - Abdominal pain [Unknown]
  - Malaise [Unknown]
  - Back pain [Unknown]
  - Wrong product administered [Unknown]
